FAERS Safety Report 25902461 (Version 2)
Quarter: 2025Q4

REPORT INFORMATION
  Report Type: Spontaneous
  Country: US (occurrence: US)
  Receive Date: 20251009
  Receipt Date: 20251210
  Transmission Date: 20260117
  Serious: No
  Sender: DR REDDYS
  Company Number: US-DRL-USA-USA/2025/09/014709

PATIENT
  Sex: Male

DRUGS (1)
  1. CLONIDINE TRANSDERMAL SYSTEM [Suspect]
     Active Substance: CLONIDINE
     Indication: Psychomotor hyperactivity
     Dosage: SERIAL NUMBER: 8IGF430QKHPO
     Route: 065

REACTIONS (1)
  - Drug ineffective for unapproved indication [Unknown]
